FAERS Safety Report 4940360-6 (Version None)
Quarter: 2006Q1

REPORT INFORMATION
  Report Type: 
  Country: None (occurrence: None)
  Receive Date: 20060310
  Receipt Date: 20050105
  Transmission Date: 20060701
  Serious: Yes (Hospitalization)
  Sender: FDA-Public Use
  Company Number: US-MERCK-0501USA00519

PATIENT
  Age: 65 Year
  Sex: Female
  Weight: 131 kg

DRUGS (4)
  1. VIOXX [Suspect]
     Indication: ARTHRALGIA
     Route: 048
     Dates: start: 20010101, end: 20040930
  2. VIOXX [Suspect]
     Route: 048
     Dates: start: 20010101, end: 20040930
  3. VIOXX [Suspect]
     Indication: OSTEOARTHRITIS
     Route: 048
     Dates: start: 20010101, end: 20040930
  4. VIOXX [Suspect]
     Route: 048
     Dates: start: 20010101, end: 20040930

REACTIONS (4)
  - ARTHROPATHY [None]
  - CEREBROVASCULAR ACCIDENT [None]
  - DEPRESSION [None]
  - TRANSIENT ISCHAEMIC ATTACK [None]
